FAERS Safety Report 6149271-4 (Version None)
Quarter: 2009Q2

REPORT INFORMATION
  Report Type: 
  Country: None (occurrence: None)
  Receive Date: 20090406
  Receipt Date: 20090406
  Transmission Date: 20091009
  Serious: Yes (Life-Threatening, Hospitalization, Other)
  Sender: FDA-Public Use
  Company Number: None

PATIENT
  Age: 80 Year
  Sex: Female
  Weight: 68.0396 kg

DRUGS (2)
  1. AMBIEN [Suspect]
     Indication: HIP SURGERY
     Dates: start: 20080617, end: 20080617
  2. AMBIEN [Suspect]
     Indication: INSOMNIA
     Dates: start: 20080617, end: 20080617

REACTIONS (4)
  - ATRIAL FIBRILLATION [None]
  - CARDIAC DISORDER [None]
  - HEMIPLEGIA [None]
  - MOBILITY DECREASED [None]
